FAERS Safety Report 16749547 (Version 1)
Quarter: 2019Q3

REPORT INFORMATION
  Report Type: Spontaneous
  Country: JP (occurrence: JP)
  Receive Date: 20190828
  Receipt Date: 20190828
  Transmission Date: 20191005
  Serious: Yes (Other)
  Sender: FDA-Public Use
  Company Number: JP-PFIZER INC-2019363568

PATIENT
  Age: 9 Decade
  Sex: Male

DRUGS (1)
  1. LORBRENA [Suspect]
     Active Substance: LORLATINIB

REACTIONS (4)
  - Interstitial lung disease [Unknown]
  - Lung infection [Unknown]
  - Hallucination [Unknown]
  - Hyperlipidaemia [Unknown]
